FAERS Safety Report 24856835 (Version 1)
Quarter: 2025Q1

REPORT INFORMATION
  Report Type: Spontaneous
  Country: MY (occurrence: MY)
  Receive Date: 20250117
  Receipt Date: 20250117
  Transmission Date: 20250408
  Serious: Yes (Other)
  Sender: MYLAN
  Company Number: MY-MYLANLABS-2025M1003946

PATIENT
  Age: 47 Year
  Sex: Female

DRUGS (1)
  1. DILANTIN [Suspect]
     Active Substance: PHENYTOIN
     Indication: Seizure
     Dosage: 300 MILLIGRAM, QD (DAY)
     Route: 048

REACTIONS (3)
  - Mouth ulceration [Unknown]
  - Genital ulceration [Unknown]
  - Rash maculo-papular [Unknown]
